FAERS Safety Report 9380299 (Version 1)
Quarter: 2013Q3

REPORT INFORMATION
  Report Type: Spontaneous
  Country: US (occurrence: None)
  Receive Date: 20130701
  Receipt Date: 20130701
  Transmission Date: 20140515
  Serious: Yes (Other)
  Sender: FDA-Public Use
  Company Number: None

PATIENT
  Age: 51 Year
  Sex: 0

DRUGS (1)
  1. KENALOG [Suspect]

REACTIONS (7)
  - Vomiting [None]
  - Nausea [None]
  - Pain [None]
  - Malaise [None]
  - Pancreatitis acute [None]
  - Aphagia [None]
  - Fluid intake reduced [None]
